FAERS Safety Report 18604623 (Version 1)
Quarter: 2020Q4

REPORT INFORMATION
  Report Type: Spontaneous
  Country: KR (occurrence: KR)
  Receive Date: 20201211
  Receipt Date: 20201211
  Transmission Date: 20210114
  Serious: Yes (Other)
  Sender: FDA-Public Use
  Company Number: KR-ALLERGAN-2043958US

PATIENT
  Sex: Male

DRUGS (1)
  1. OZURDEX [Suspect]
     Active Substance: DEXAMETHASONE
     Indication: CHORIORETINITIS
     Dosage: 0.7 MG, SINGLE
     Route: 031

REACTIONS (4)
  - Glaucoma [Not Recovered/Not Resolved]
  - Contraindicated product administered [Unknown]
  - Corneal endothelial cell loss [Unknown]
  - Device dislocation [Recovered/Resolved]
